FAERS Safety Report 20976600 (Version 1)
Quarter: 2022Q2

REPORT INFORMATION
  Report Type: Report from Study
  Country: US (occurrence: US)
  Receive Date: 20220617
  Receipt Date: 20220617
  Transmission Date: 20220721
  Serious: No
  Sender: FDA-Public Use
  Company Number: US-SUNOVION-2022SUN001795

PATIENT
  Age: 67 Year
  Sex: Male

DRUGS (2)
  1. KYNMOBI [Suspect]
     Active Substance: APOMORPHINE HYDROCHLORIDE
     Dosage: 25 MG
     Route: 060
     Dates: start: 20220603
  2. KYNMOBI [Suspect]
     Active Substance: APOMORPHINE HYDROCHLORIDE
     Dosage: 30 MG
     Route: 060
     Dates: start: 20220603

REACTIONS (10)
  - Drug ineffective [Unknown]
  - Peripheral coldness [Unknown]
  - Tremor [Recovering/Resolving]
  - Cold sweat [Unknown]
  - Heart rate decreased [Unknown]
  - Retching [Recovered/Resolved]
  - Hyperhidrosis [Recovered/Resolved]
  - Nausea [Recovered/Resolved]
  - Orthostatic hypotension [Unknown]
  - Rhinorrhoea [Unknown]

NARRATIVE: CASE EVENT DATE: 20220609
